FAERS Safety Report 6568510-9 (Version None)
Quarter: 2010Q1

REPORT INFORMATION
  Report Type: 
  Country: None (occurrence: None)
  Receive Date: 20100129
  Receipt Date: 20100118
  Transmission Date: 20100710
  Serious: Yes (Death)
  Sender: FDA-Public Use
  Company Number: 1000011329

PATIENT
  Sex: Male

DRUGS (2)
  1. CARBAMAZEPINE [Suspect]
     Indication: CONVULSION
     Dosage: 1 GM (1 GM, 1 IN 1 D)
  2. DARVOCET-N 100 [Suspect]
     Indication: PAIN

REACTIONS (4)
  - DRUG INTERACTION [None]
  - DRUG TOXICITY [None]
  - HERNIA REPAIR [None]
  - MALAISE [None]
